FAERS Safety Report 5338976-0 (Version None)
Quarter: 2007Q2

REPORT INFORMATION
  Report Type: 
  Country: None (occurrence: None)
  Receive Date: 20070530
  Receipt Date: 20070522
  Transmission Date: 20071010
  Serious: Yes (Other)
  Sender: FDA-Public Use
  Company Number: DE-PFIZER INC-2006132274

PATIENT
  Sex: Male

DRUGS (2)
  1. NEURONTIN [Suspect]
     Indication: EPILEPSY
     Route: 048
  2. ATENOLOL [Concomitant]
     Route: 048

REACTIONS (4)
  - ASTHENIA [None]
  - HEADACHE [None]
  - RETINAL DETACHMENT [None]
  - VISUAL ACUITY REDUCED [None]
